FAERS Safety Report 7207657-0 (Version None)
Quarter: 2011Q1

REPORT INFORMATION
  Report Type: 
  Country: None (occurrence: None)
  Receive Date: 20110103
  Receipt Date: 20101223
  Transmission Date: 20110831
  Serious: Yes (Other)
  Sender: FDA-Public Use
  Company Number: US-ASTRAZENECA-2010SE60680

PATIENT
  Age: 47 Year
  Sex: Male
  Weight: 140.6 kg

DRUGS (2)
  1. CRESTOR [Suspect]
     Route: 048
     Dates: start: 20070101
  2. 16 OTHER MEDICATIONS [Concomitant]

REACTIONS (3)
  - DIABETIC COMPLICATION [None]
  - DISABILITY [None]
  - LOSS OF CONSCIOUSNESS [None]
